FAERS Safety Report 5862036-3 (Version None)
Quarter: 2008Q3

REPORT INFORMATION
  Report Type: 
  Country: None (occurrence: None)
  Receive Date: 20080826
  Receipt Date: 20080811
  Transmission Date: 20090109
  Serious: Yes (Disabling, Other)
  Sender: FDA-Public Use
  Company Number: 1000000599

PATIENT
  Age: 59 Year
  Sex: Male

DRUGS (3)
  1. ESCITALOPRAM [Suspect]
     Indication: SOCIAL PHOBIA
     Dosage: 10 MG (10 MG, 1 IN 1 D)
     Dates: start: 20080619, end: 20080701
  2. ESCITALOPRAM [Suspect]
     Indication: SOCIAL PHOBIA
     Dosage: 5 MG (5 MG, 1 IN 1 D)
     Dates: start: 20080515, end: 20080618
  3. ANTABUSE [Concomitant]

REACTIONS (5)
  - COGNITIVE DISORDER [None]
  - DYSKINESIA [None]
  - INFLUENZA LIKE ILLNESS [None]
  - MEMORY IMPAIRMENT [None]
  - MOTOR DYSFUNCTION [None]
